FAERS Safety Report 19835107 (Version 2)
Quarter: 2021Q3

REPORT INFORMATION
  Report Type: Spontaneous
  Country: FR (occurrence: FR)
  Receive Date: 20210915
  Receipt Date: 20210920
  Transmission Date: 20211014
  Serious: Yes (Congenital Anomaly, Other)
  Sender: FDA-Public Use
  Company Number: FR-ABBVIE-16P-056-1756691-00

PATIENT
  Sex: Male

DRUGS (2)
  1. LEVOTHYROX [Suspect]
     Active Substance: LEVOTHYROXINE
     Indication: MATERNAL EXPOSURE TIMING UNSPECIFIED
     Route: 064
  2. DEPAKINE [Suspect]
     Active Substance: VALPROATE SODIUM
     Indication: MATERNAL EXPOSURE TIMING UNSPECIFIED
     Route: 064

REACTIONS (42)
  - Gaze palsy [Unknown]
  - Anxiety [Unknown]
  - Cognitive disorder [Unknown]
  - Social avoidant behaviour [Unknown]
  - Learning disorder [Unknown]
  - Congenital multiplex arthrogryposis [Unknown]
  - Developmental delay [Unknown]
  - Musculoskeletal disorder [Unknown]
  - Communication disorder [Unknown]
  - Hypotonia [Unknown]
  - Speech disorder developmental [Unknown]
  - Visual impairment [Unknown]
  - Central nervous system infection [Unknown]
  - Pasteurella infection [Unknown]
  - Dysmorphism [Unknown]
  - Frustration tolerance decreased [Unknown]
  - Speech sound disorder [Unknown]
  - Aggression [Unknown]
  - Hypermobility syndrome [Not Recovered/Not Resolved]
  - Trigger finger [Not Recovered/Not Resolved]
  - Adenoidal hypertrophy [Unknown]
  - Toe walking [Unknown]
  - Antisocial behaviour [Unknown]
  - Personality disorder of childhood [Unknown]
  - Lip disorder [Unknown]
  - Speech disorder [Unknown]
  - Behaviour disorder [Unknown]
  - Autism spectrum disorder [Not Recovered/Not Resolved]
  - Hypertrichosis [Unknown]
  - Foetal exposure during pregnancy [Unknown]
  - Camptodactyly congenital [Not Recovered/Not Resolved]
  - Congenital elevation of scapula [Not Recovered/Not Resolved]
  - Ear infection [Unknown]
  - Agitation [Unknown]
  - Decreased eye contact [Unknown]
  - Spinal disorder [Unknown]
  - Myopia [Not Recovered/Not Resolved]
  - Haematuria [Unknown]
  - Psychomotor retardation [Unknown]
  - Language disorder [Unknown]
  - Otitis media chronic [Recovering/Resolving]
  - Unevaluable event [Unknown]

NARRATIVE: CASE EVENT DATE: 20091020
